FAERS Safety Report 5953238-6 (Version None)
Quarter: 2008Q4

REPORT INFORMATION
  Report Type: 
  Country: None (occurrence: None)
  Receive Date: 20081114
  Receipt Date: 20081110
  Transmission Date: 20090506
  Serious: Yes (Death, Hospitalization)
  Sender: FDA-Public Use
  Company Number: US-ROCHE-582601

PATIENT
  Sex: Female
  Weight: 53.5 kg

DRUGS (1)
  1. CAPECITABINE [Suspect]
     Indication: BREAST CANCER
     Route: 048
     Dates: start: 20080812, end: 20080819

REACTIONS (3)
  - ADVERSE EVENT [None]
  - BREAST CANCER METASTATIC [None]
  - MENINGEAL DISORDER [None]
